FAERS Safety Report 5314520-9 (Version None)
Quarter: 2007Q2

REPORT INFORMATION
  Report Type: 
  Country: None (occurrence: None)
  Receive Date: 20070501
  Receipt Date: 20070501
  Transmission Date: 20071010
  Serious: Yes (Hospitalization, Other)
  Sender: FDA-Public Use
  Company Number: None

PATIENT
  Age: 32 Year
  Sex: Female
  Weight: 56.6996 kg

DRUGS (2)
  1. AVELOX [Suspect]
     Indication: SINUSITIS
     Dosage: 400 MG QD PO
     Route: 048
     Dates: start: 20070423, end: 20070424
  2. PREDNISONE [Suspect]
     Dosage: 20 MG DAY 1 AN D2, 10 MG DAY 3 PO
     Route: 048
     Dates: start: 20070423, end: 20070425

REACTIONS (6)
  - ANXIETY [None]
  - BURNING SENSATION [None]
  - HYPOAESTHESIA [None]
  - PALPITATIONS [None]
  - PARAESTHESIA [None]
  - TENDONITIS [None]
